FAERS Safety Report 8554489-7 (Version None)
Quarter: 2012Q3

REPORT INFORMATION
  Report Type: 
  Country: None (occurrence: None)
  Receive Date: 20120726
  Receipt Date: 20120726
  Transmission Date: 20120928
  Serious: Yes (Other)
  Sender: FDA-Public Use
  Company Number: None

PATIENT
  Sex: Female
  Weight: 81.5 kg

DRUGS (1)
  1. VANCOMYCIN [Suspect]
     Dosage: 750MG IV
     Route: 042

REACTIONS (1)
  - THROMBOCYTOPENIA [None]
